FAERS Safety Report 7540028-6 (Version None)
Quarter: 2011Q2

REPORT INFORMATION
  Report Type: 
  Country: None (occurrence: None)
  Receive Date: 20110610
  Receipt Date: 20110531
  Transmission Date: 20111010
  Serious: Yes (Hospitalization, Other)
  Sender: FDA-Public Use
  Company Number: US-BAYER-201042078NA

PATIENT
  Age: 21 Year
  Sex: Female
  Weight: 91 kg

DRUGS (6)
  1. CELEXA [Concomitant]
     Indication: DEPRESSION
     Dosage: 20 MG, UNK
     Dates: start: 20070321, end: 20070412
  2. YASMIN [Suspect]
     Dosage: UNK
  3. GLUCOPHAGE [Concomitant]
     Indication: INSULIN RESISTANCE
     Dosage: 750 MG, QD
     Route: 048
  4. METFORMIN HCL [Concomitant]
     Dosage: 500 MG, BID
     Dates: start: 20070101
  5. YASMIN [Suspect]
     Indication: ORAL CONTRACEPTION
     Dosage: UNK
     Route: 048
     Dates: start: 20050701, end: 20080601
  6. LEXAPRO [Concomitant]
     Indication: DEPRESSION
     Dosage: 10 MG, UNK

REACTIONS (1)
  - CHOLELITHIASIS [None]
